FAERS Safety Report 19836134 (Version 1)
Quarter: 2021Q3

REPORT INFORMATION
  Report Type: Report from Study
  Country: US (occurrence: US)
  Receive Date: 20210916
  Receipt Date: 20210916
  Transmission Date: 20211014
  Serious: No
  Sender: FDA-Public Use
  Company Number: NVSC2021US209242

PATIENT
  Sex: Male

DRUGS (1)
  1. ILARIS [Suspect]
     Active Substance: CANAKINUMAB
     Indication: ILL-DEFINED DISORDER
     Dosage: 150 MG, QMO
     Route: 058
     Dates: start: 20190708

REACTIONS (1)
  - Illness [Unknown]
